FAERS Safety Report 4679697-7 (Version None)
Quarter: 2005Q2

REPORT INFORMATION
  Report Type: 
  Country: None (occurrence: None)
  Receive Date: 20050531
  Receipt Date: 20050519
  Transmission Date: 20051028
  Serious: Yes (Disabling, Other)
  Sender: FDA-Public Use
  Company Number: 2005-04-2145

PATIENT
  Age: 56 Year
  Sex: Female

DRUGS (4)
  1. INTRON A [Suspect]
     Indication: MALIGNANT MELANOMA
     Dosage: SEE IMAGE
     Dates: start: 20011220, end: 20020101
  2. INTRON A [Suspect]
     Indication: MALIGNANT MELANOMA
     Dosage: SEE IMAGE
     Dates: start: 20011220, end: 20021201
  3. INTRON A [Suspect]
     Indication: MALIGNANT MELANOMA
     Dosage: SEE IMAGE
     Dates: start: 20020101, end: 20021201
  4. VACCINE (NOS) [Concomitant]

REACTIONS (17)
  - ALLERGIC RESPIRATORY SYMPTOM [None]
  - ANTINUCLEAR ANTIBODY POSITIVE [None]
  - ANXIETY DISORDER DUE TO A GENERAL MEDICAL CONDITION [None]
  - ASTHENIA [None]
  - BLOOD CHOLESTEROL INCREASED [None]
  - BLOOD CORTISOL DECREASED [None]
  - BLOOD LACTATE DEHYDROGENASE INCREASED [None]
  - CHRONIC FATIGUE SYNDROME [None]
  - COMPUTERISED TOMOGRAM ABNORMAL [None]
  - HYPOTHYROIDISM [None]
  - INSOMNIA [None]
  - MOTOR DYSFUNCTION [None]
  - MUCOSAL DRYNESS [None]
  - MYALGIA [None]
  - OBESITY [None]
  - PAIN [None]
  - PHARYNGITIS [None]
